FAERS Safety Report 23442991 (Version 1)
Quarter: 2024Q1

REPORT INFORMATION
  Report Type: Spontaneous
  Country: US (occurrence: US)
  Receive Date: 20240125
  Receipt Date: 20240125
  Transmission Date: 20240410
  Serious: No
  Sender: FDA-Public Use
  Company Number: US-BAYER-2024A014618

PATIENT
  Age: 81 Year
  Sex: Female

DRUGS (1)
  1. ALEVE BACK AND MUSCLE PAIN [Suspect]
     Active Substance: NAPROXEN SODIUM
     Indication: Pain
     Dosage: 1 DF, HS
     Route: 048
     Dates: start: 20240123, end: 20240123

REACTIONS (1)
  - Dry mouth [Recovered/Resolved]

NARRATIVE: CASE EVENT DATE: 20240123
